FAERS Safety Report 13030988 (Version 1)
Quarter: 2016Q4

REPORT INFORMATION
  Report Type: Spontaneous
  Country: TR (occurrence: TR)
  Receive Date: 20161215
  Receipt Date: 20161215
  Transmission Date: 20170207
  Serious: Yes (Other)
  Sender: FDA-Public Use
  Company Number: TR-GILEAD-2016-0243467

PATIENT
  Sex: Female

DRUGS (2)
  1. RIBAVIRIN. [Concomitant]
     Active Substance: RIBAVIRIN
     Dosage: UNK
     Dates: start: 20161104
  2. HARVONI [Suspect]
     Active Substance: LEDIPASVIR\SOFOSBUVIR
     Indication: CHRONIC HEPATITIS C
     Dosage: UNK
     Route: 065
     Dates: start: 20161104

REACTIONS (3)
  - Blood creatinine increased [Not Recovered/Not Resolved]
  - Glomerular filtration rate decreased [Unknown]
  - Asthenia [Unknown]
